FAERS Safety Report 12827550 (Version 1)
Quarter: 2016Q4

REPORT INFORMATION
  Report Type: Spontaneous
  Country: KR (occurrence: KR)
  Receive Date: 20161007
  Receipt Date: 20161007
  Transmission Date: 20170207
  Serious: Yes (Other)
  Sender: FDA-Public Use
  Company Number: KR-PRINSTON PHARMACEUTICAL INC.-2016PRN00264

PATIENT
  Age: 63 Year
  Sex: Male

DRUGS (23)
  1. VENLAFAXINE [Suspect]
     Active Substance: VENLAFAXINE HYDROCHLORIDE
     Dosage: 37.5 MG, UNK
     Route: 065
  2. VENLAFAXINE [Suspect]
     Active Substance: VENLAFAXINE HYDROCHLORIDE
     Dosage: UNK
     Route: 065
  3. ROPINIROLE. [Suspect]
     Active Substance: ROPINIROLE
     Dosage: 0.75 MG, 1X/DAY
     Route: 065
  4. TIANEPTINE [Suspect]
     Active Substance: TIANEPTINE
     Dosage: 37.5 MG, UNK
     Route: 065
  5. DONEPEZIL. [Suspect]
     Active Substance: DONEPEZIL
     Dosage: UNK
     Route: 065
  6. CARBIDOPA/LEVODOPA [Suspect]
     Active Substance: CARBIDOPA\LEVODOPA
     Dosage: 37.5/375 MG
     Route: 065
  7. BROMOCRIPTINE [Suspect]
     Active Substance: BROMOCRIPTINE
     Dosage: DAILY DOSE: 2.5 MG
     Route: 065
  8. METHYLPHENIDATE. [Suspect]
     Active Substance: METHYLPHENIDATE
     Dosage: 20 MG, UNK
     Route: 065
  9. ROPINIROLE. [Suspect]
     Active Substance: ROPINIROLE
     Dosage: 0.625 MG, 1X/DAY
     Route: 065
  10. CARBIDOPA/LEVODOPA [Suspect]
     Active Substance: CARBIDOPA\LEVODOPA
     Dosage: DAILY DOSE: 25/250 MG
     Route: 065
  11. BROMOCRIPTINE [Suspect]
     Active Substance: BROMOCRIPTINE
     Dosage: UNK
     Route: 065
  12. TIANEPTINE [Suspect]
     Active Substance: TIANEPTINE
     Dosage: UNK
     Route: 065
  13. ROPINIROLE. [Suspect]
     Active Substance: ROPINIROLE
     Dosage: 0.25 MG, 1X/DAY
     Route: 065
  14. CARBIDOPA/LEVODOPA [Suspect]
     Active Substance: CARBIDOPA\LEVODOPA
     Dosage: UNK
     Route: 065
  15. AMANTADINE [Suspect]
     Active Substance: AMANTADINE
     Dosage: UNK
     Route: 065
  16. METHYLPHENIDATE. [Suspect]
     Active Substance: METHYLPHENIDATE
     Dosage: DAILY DOSE: 5 MG
     Route: 065
  17. ROPINIROLE. [Suspect]
     Active Substance: ROPINIROLE
     Dosage: DAILY DOSE: 0.5 MG
     Route: 065
  18. DONEPEZIL. [Suspect]
     Active Substance: DONEPEZIL
     Dosage: 5 MG, UNK
     Route: 065
  19. CARBIDOPA/LEVODOPA [Suspect]
     Active Substance: CARBIDOPA\LEVODOPA
     Dosage: DAILY DOSAGE 50/500 MG
     Route: 065
  20. BROMOCRIPTINE [Suspect]
     Active Substance: BROMOCRIPTINE
     Dosage: 2.5 MG, UNK
     Route: 065
  21. AMANTADINE [Suspect]
     Active Substance: AMANTADINE
     Dosage: 300 MG, UNK
     Route: 065
  22. AMANTADINE [Suspect]
     Active Substance: AMANTADINE
     Dosage: DAILY DOSE: 200 MG
     Route: 065
  23. METHYLPHENIDATE. [Suspect]
     Active Substance: METHYLPHENIDATE
     Dosage: UNK
     Route: 065

REACTIONS (1)
  - Serotonin syndrome [Recovered/Resolved]
